FAERS Safety Report 12731470 (Version 1)
Quarter: 2016Q3

REPORT INFORMATION
  Report Type: Spontaneous
  Country: US (occurrence: US)
  Receive Date: 20160908
  Receipt Date: 20160908
  Transmission Date: 20161109
  Serious: No
  Sender: FDA-Public Use
  Company Number: None

PATIENT
  Age: 63 Year
  Sex: Female

DRUGS (1)
  1. OCTREOTIDE INJ 0.2MG/ML [Suspect]
     Active Substance: OCTREOTIDE
     Route: 042
     Dates: start: 20160813, end: 20160908

REACTIONS (4)
  - Therapy change [None]
  - Incorrect route of drug administration [None]
  - Nausea [None]
  - Vomiting [None]

NARRATIVE: CASE EVENT DATE: 20160813
